FAERS Safety Report 8625712-5 (Version None)
Quarter: 2012Q3

REPORT INFORMATION
  Report Type: 
  Country: None (occurrence: None)
  Receive Date: 20120827
  Receipt Date: 20120816
  Transmission Date: 20120928
  Serious: Yes (Other)
  Sender: FDA-Public Use
  Company Number: US-ASTRAZENECA-2012SE16309

PATIENT
  Age: 55 Year
  Sex: Female
  Weight: 61.2 kg

DRUGS (7)
  1. SEROQUEL [Suspect]
     Route: 048
  2. RITALIN [Concomitant]
     Indication: DISTURBANCE IN ATTENTION
  3. SEROQUEL [Suspect]
     Indication: BIPOLAR DISORDER
     Route: 048
  4. TRAZODONE HYDROCHLORIDE [Concomitant]
     Indication: SLEEP DISORDER
  5. SEROQUEL [Suspect]
     Indication: DEPRESSION
     Route: 048
  6. XANAX [Concomitant]
  7. SEROQUEL [Suspect]
     Route: 048

REACTIONS (3)
  - VISUAL IMPAIRMENT [None]
  - BACK DISORDER [None]
  - EYE DISORDER [None]
